FAERS Safety Report 7233242-0 (Version None)
Quarter: 2011Q1

REPORT INFORMATION
  Report Type: 
  Country: None (occurrence: None)
  Receive Date: 20110119
  Receipt Date: 20110113
  Transmission Date: 20110831
  Serious: Yes (Other)
  Sender: FDA-Public Use
  Company Number: B0659268A

PATIENT
  Age: 33 Year
  Sex: Female

DRUGS (1)
  1. SERETIDE [Suspect]
     Indication: PRODUCT USED FOR UNKNOWN INDICATION
     Dosage: 50UG FOUR TIMES PER DAY
     Route: 055
     Dates: start: 20100209, end: 20100214

REACTIONS (2)
  - LIVE BIRTH [None]
  - DRUG EXPOSURE DURING PREGNANCY [None]
